FAERS Safety Report 20791896 (Version 4)
Quarter: 2023Q1

REPORT INFORMATION
  Report Type: Spontaneous
  Country: US (occurrence: US)
  Receive Date: 20220505
  Receipt Date: 20230127
  Transmission Date: 20230418
  Serious: No
  Sender: FDA-Public Use
  Company Number: US-PFIZER INC-202101290361

PATIENT
  Age: 40 Year
  Sex: Female

DRUGS (2)
  1. XELJANZ XR [Suspect]
     Active Substance: TOFACITINIB CITRATE
     Indication: Rheumatoid arthritis
     Dosage: 11 MG, 1X/DAY (ONCE DAILY)
     Route: 048
     Dates: start: 20210826
  2. PREDNISONE [Concomitant]
     Active Substance: PREDNISONE
     Dosage: UNK UNK, AS NEEDED

REACTIONS (9)
  - Drug ineffective [Unknown]
  - Fatigue [Unknown]
  - Sensitivity to weather change [Unknown]
  - Arthralgia [Unknown]
  - Malaise [Unknown]
  - Gastroenteritis viral [Unknown]
  - COVID-19 [Recovering/Resolving]
  - Condition aggravated [Recovering/Resolving]
  - Pain [Recovering/Resolving]
